FAERS Safety Report 16168254 (Version 1)
Quarter: 2019Q2

REPORT INFORMATION
  Report Type: Spontaneous
  Country: US (occurrence: US)
  Receive Date: 20190405
  Receipt Date: 20190405
  Transmission Date: 20190711
  Serious: No
  Sender: FDA-Public Use
  Company Number: None

PATIENT
  Age: 38 Year
  Sex: Female

DRUGS (7)
  1. SYMDEKO [Suspect]
     Active Substance: IVACAFTOR\TEZACAFTOR
     Indication: CYSTIC FIBROSIS
     Route: 048
  2. CREON 36000 CAPSULE [Concomitant]
  3. HYPERSAL 7% NEBS [Concomitant]
  4. ALBUTEROL 0.083 NEBS [Concomitant]
  5. SYMBICORT 160/4.5 INHALER [Concomitant]
  6. PREDNISONE 10MG [Concomitant]
     Active Substance: PREDNISONE
  7. PROAIR INHALER [Concomitant]
     Active Substance: ALBUTEROL SULFATE

REACTIONS (2)
  - Sinusitis [None]
  - Upper respiratory tract infection [None]

NARRATIVE: CASE EVENT DATE: 20190405
